FAERS Safety Report 19881804 (Version 3)
Quarter: 2021Q4

REPORT INFORMATION
  Report Type: Report from Study
  Country: CA (occurrence: CA)
  Receive Date: 20210925
  Receipt Date: 20211103
  Transmission Date: 20220303
  Serious: Yes (Death, Hospitalization, Other)
  Sender: FDA-Public Use
  Company Number: NVSC2021CA217398

PATIENT
  Age: 64 Year
  Sex: Female

DRUGS (4)
  1. PIQRAY [Suspect]
     Active Substance: ALPELISIB
     Indication: Breast cancer metastatic
     Dosage: UNK
     Route: 048
     Dates: start: 20210821
  2. PIQRAY [Suspect]
     Active Substance: ALPELISIB
     Dosage: 300 MG
     Route: 065
  3. PIQRAY [Suspect]
     Active Substance: ALPELISIB
     Dosage: 250 MG, QD
     Route: 065
  4. FULVESTRANT [Suspect]
     Active Substance: FULVESTRANT
     Indication: Breast cancer metastatic
     Dosage: UNK
     Route: 048
     Dates: start: 20210821

REACTIONS (11)
  - Death [Fatal]
  - Diabetic ketoacidosis [Unknown]
  - Hyperglycaemia [Unknown]
  - Feeding disorder [Unknown]
  - Retching [Unknown]
  - Candida infection [Unknown]
  - Abdominal distension [Unknown]
  - Diarrhoea [Unknown]
  - Vomiting [Unknown]
  - Peripheral swelling [Unknown]
  - Rash [Unknown]

NARRATIVE: CASE EVENT DATE: 20211016
